FAERS Safety Report 4710785-2 (Version None)
Quarter: 2005Q3

REPORT INFORMATION
  Report Type: 
  Country: None (occurrence: None)
  Receive Date: 20050708
  Receipt Date: 20050623
  Transmission Date: 20060218
  Serious: Yes (Death)
  Sender: FDA-Public Use
  Company Number: 2005-DE-02407GD

PATIENT
  Age: 29 Year
  Sex: Female

DRUGS (3)
  1. MORPHINE [Suspect]
     Indication: MIGRAINE
     Dosage: 2 DOSE OF MORPHINE 30 MG; 2ND DOSE WAS PRESCRIBED APPROX. 6.5 HOURS AFTER THE 1ST DOSE , PO
     Route: 048
  2. ANTIBIOTICS [Concomitant]
  3. ANTIEMETIC (ANTIEMETICS AND ANTINAUSEANTS) [Concomitant]

REACTIONS (8)
  - BRAIN OEDEMA [None]
  - DRUG ADMINISTRATION ERROR [None]
  - EPSTEIN-BARR VIRUS INFECTION [None]
  - LYMPHADENOPATHY [None]
  - PHARYNGEAL STENOSIS [None]
  - RESPIRATORY FAILURE [None]
  - SPLENOMEGALY [None]
  - TONSILLAR HYPERTROPHY [None]
